FAERS Safety Report 20057513 (Version 1)
Quarter: 2021Q4

REPORT INFORMATION
  Report Type: Spontaneous
  Country: US (occurrence: None)
  Receive Date: 20211110
  Receipt Date: 20211110
  Transmission Date: 20220303
  Serious: Yes (Life-Threatening, Hospitalization, Disabling)
  Sender: FDA-Public Use
  Company Number: None

PATIENT
  Age: 61 Year
  Sex: Female
  Weight: 51.75 kg

DRUGS (3)
  1. LIDOCAINE HYDROCHLORIDE [Suspect]
     Active Substance: LIDOCAINE HYDROCHLORIDE
     Indication: Local anaesthesia
     Dosage: OTHER QUANTITY : 3 INJECTION(S);?OTHER FREQUENCY : ONE TIME PROCEDURE;?OTHER ROUTE : LOCAL ANESTHESI
     Route: 050
     Dates: start: 20210928, end: 20210928
  2. VITAMIN D [Concomitant]
     Active Substance: VITAMIN D NOS
  3. VITAMINS [Concomitant]
     Active Substance: VITAMINS

REACTIONS (14)
  - Tremor [None]
  - Tremor [None]
  - Fatigue [None]
  - Fear [None]
  - Palpitations [None]
  - Paranoia [None]
  - Nervousness [None]
  - Confusional state [None]
  - Headache [None]
  - Dizziness [None]
  - Hypoaesthesia oral [None]
  - Thirst [None]
  - Hypotension [None]
  - Thyroid mass [None]

NARRATIVE: CASE EVENT DATE: 20210928
